FAERS Safety Report 4558596-5 (Version None)
Quarter: 2005Q1

REPORT INFORMATION
  Report Type: 
  Country: None (occurrence: None)
  Receive Date: 20050121
  Receipt Date: 20050112
  Transmission Date: 20050727
  Serious: Yes (Hospitalization)
  Sender: FDA-Public Use
  Company Number: US-ROCHE-392237

PATIENT
  Age: 54 Year
  Sex: Male

DRUGS (3)
  1. PEG-INTERFERON ALFA 2A (RO 25-8310) [Suspect]
     Dosage: ROUTE OF ADMINISTRATION REFERRED TO AS INJECTION IN THE PROTOCOL.
     Route: 050
     Dates: start: 20040227
  2. RIBAVIRIN [Suspect]
     Dosage: FREQUENCY STATED IN PROTOCOL
     Route: 048
     Dates: start: 20040227
  3. BLINDED POLYENYLPHOSPHATIDYLCHOLINE [Suspect]
     Route: 065
     Dates: start: 20040227

REACTIONS (2)
  - LACERATION [None]
  - SYNCOPE [None]
